FAERS Safety Report 24645095 (Version 1)
Quarter: 2024Q4

REPORT INFORMATION
  Report Type: Spontaneous
  Country: US (occurrence: US)
  Receive Date: 20241121
  Receipt Date: 20241121
  Transmission Date: 20250115
  Serious: No
  Sender: TEVA
  Company Number: US-TEVA-VS-3262504

PATIENT
  Sex: Female

DRUGS (1)
  1. CRYSELLE [Suspect]
     Active Substance: ETHINYL ESTRADIOL\NORGESTREL
     Indication: Product used for unknown indication
     Route: 065

REACTIONS (1)
  - Pruritus [Unknown]
